FAERS Safety Report 10741613 (Version 1)
Quarter: 2015Q1

REPORT INFORMATION
  Report Type: Spontaneous
  Country: US (occurrence: US)
  Receive Date: 20150127
  Receipt Date: 20150127
  Transmission Date: 20150721
  Serious: No
  Sender: FDA-Public Use
  Company Number: US-PFIZER INC-2015032131

PATIENT
  Age: 48 Year
  Sex: Female
  Weight: 68 kg

DRUGS (1)
  1. GABAPENTIN. [Suspect]
     Active Substance: GABAPENTIN
     Dosage: 300 MG, 1-2 CAPSULES THREE A DAY
     Route: 048
     Dates: start: 201404

REACTIONS (1)
  - Morbid thoughts [Recovered/Resolved]

NARRATIVE: CASE EVENT DATE: 2014
